FAERS Safety Report 4861327-2 (Version None)
Quarter: 2005Q4

REPORT INFORMATION
  Report Type: 
  Country: None (occurrence: None)
  Receive Date: 20051116
  Receipt Date: 20051205
  Transmission Date: 20060501
  Serious: Yes (Other)
  Sender: FDA-Public Use
  Company Number: 200510843BFR

PATIENT
  Age: 78 Year
  Sex: Female

DRUGS (3)
  1. CIPROFLOXACIN [Suspect]
     Indication: RENAL COLIC
     Dosage: 500 MG, BID,
     Dates: start: 20051101
  2. COVERSYL [Concomitant]
  3. LOXEN [Concomitant]

REACTIONS (4)
  - DRUG INEFFECTIVE [None]
  - LACERATION [None]
  - MUSCLE CONTRACTURE [None]
  - MUSCLE INJURY [None]
